FAERS Safety Report 9048720 (Version 1)
Quarter: 2013Q2

REPORT INFORMATION
  Report Type: Spontaneous
  Country: US (occurrence: None)
  Receive Date: 20130130
  Receipt Date: 20130130
  Transmission Date: 20140414
  Serious: Yes (Hospitalization)
  Sender: FDA-Public Use
  Company Number: None

PATIENT
  Age: 58 Year
  Sex: Female
  Weight: 113.58 kg

DRUGS (12)
  1. GEMCITABINE [Suspect]
     Indication: CHOLANGIOCARCINOMA
     Dates: start: 20121210, end: 20121226
  2. CLONAZEPAM [Concomitant]
  3. ONDANSETRON [Concomitant]
  4. MOPHINE [Concomitant]
  5. COMPAZINE [Concomitant]
  6. SENNA [Concomitant]
  7. MIRALAX [Concomitant]
  8. LANTUS [Concomitant]
  9. NOVOLOG [Concomitant]
  10. LASIX [Concomitant]
  11. KCL [Concomitant]
  12. IMODIUM [Concomitant]

REACTIONS (2)
  - Dyspnoea [None]
  - General physical health deterioration [None]
